FAERS Safety Report 15365384 (Version 3)
Quarter: 2018Q4

REPORT INFORMATION
  Report Type: Spontaneous
  Country: US (occurrence: US)
  Receive Date: 20180910
  Receipt Date: 20181017
  Transmission Date: 20190204
  Serious: No
  Sender: FDA-Public Use
  Company Number: US-PFIZER INC-2018358065

PATIENT
  Age: 78 Year
  Sex: Female

DRUGS (1)
  1. ADVIL [Suspect]
     Active Substance: IBUPROFEN
     Dosage: 200 MG, AS NEEDED
     Dates: start: 201808, end: 201808

REACTIONS (5)
  - Joint injury [Unknown]
  - Product use complaint [Unknown]
  - Product package associated injury [Unknown]
  - Product container seal issue [Unknown]
  - Limb injury [Unknown]

NARRATIVE: CASE EVENT DATE: 201808
